FAERS Safety Report 14345937 (Version 2)
Quarter: 2018Q1

REPORT INFORMATION
  Report Type: Spontaneous
  Country: US (occurrence: US)
  Receive Date: 20180103
  Receipt Date: 20180205
  Transmission Date: 20180509
  Serious: Yes (Other)
  Sender: FDA-Public Use
  Company Number: US-SA-2017SA259128

PATIENT
  Age: 41 Year
  Sex: Female

DRUGS (2)
  1. GLYCERYL TRINITRATE [Suspect]
     Active Substance: NITROGLYCERIN
     Indication: ERYTHROMELALGIA
     Route: 042
  2. CAPSAICIN. [Suspect]
     Active Substance: CAPSAICIN
     Indication: ERYTHROMELALGIA
     Dosage: HIGH-DOSE TRANSDERMAL PATCH
     Route: 065

REACTIONS (1)
  - Skin exfoliation [Unknown]
